FAERS Safety Report 21973120 (Version 5)
Quarter: 2023Q4

REPORT INFORMATION
  Report Type: Spontaneous
  Country: US (occurrence: US)
  Receive Date: 20230209
  Receipt Date: 20231024
  Transmission Date: 20240109
  Serious: Yes (Death, Other)
  Sender: FDA-Public Use
  Company Number: US-PFIZER INC-PV202300025113

PATIENT
  Age: 78 Year
  Sex: Female

DRUGS (3)
  1. IBRANCE [Suspect]
     Active Substance: PALBOCICLIB
     Indication: Breast cancer female
     Dosage: 100 MG, CYCLIC (1 TABLET DAILY FOR 21 DAYS; SAME TIME DAILY ON DAYS 1-21 OF EACH 28 DAY CYCLE)
     Route: 048
  2. IBRANCE [Suspect]
     Active Substance: PALBOCICLIB
     Dosage: 100 MG, 1 TABLET AS NEEDED (SAME TIME DAILY ON DAYS 1 -21 OF EACH 28 DAY CYCLE)
     Route: 048
     Dates: start: 20211015
  3. LIPITOR [Concomitant]
     Active Substance: ATORVASTATIN CALCIUM
     Dosage: 40 MG, 1 TABLET TWO TIMES A DAY
     Route: 048
     Dates: start: 20211105

REACTIONS (3)
  - Death [Fatal]
  - General physical health deterioration [Unknown]
  - Intentional product misuse [Unknown]

NARRATIVE: CASE EVENT DATE: 20211015
